FAERS Safety Report 4730959-4 (Version None)
Quarter: 2005Q3

REPORT INFORMATION
  Report Type: 
  Country: None (occurrence: None)
  Receive Date: 20050726
  Receipt Date: 20041013
  Transmission Date: 20060218
  Serious: Yes (Other)
  Sender: FDA-Public Use
  Company Number: 04GER0228

PATIENT
  Age: 83 Year
  Sex: Male

DRUGS (12)
  1. AGGRASTAT [Suspect]
     Dosage: 40 ML/DAILY
     Dates: start: 20040414, end: 20040414
  2. ASPIRIN [Concomitant]
  3. ATORVASTATIN (ATORVASTATIN CALCIUM) [Concomitant]
  4. BUDESONIDE [Concomitant]
  5. FORMOTEROL FUMARATE (FORMOTEROL FUMARATE) [Concomitant]
  6. CLOPIDOGREL BISULFATE [Concomitant]
  7. ELECTROLYTES (ELECTROLYTES WITH CARBOHYDRATES) [Concomitant]
  8. HEPARIN SODIUM [Concomitant]
  9. IRBESARTAN [Concomitant]
  10. METOPROLOL SUCCINATE [Concomitant]
  11. NITROGLYCERINE (GLYCERYL TRINITRATE) [Concomitant]
  12. RAMIPRIL [Concomitant]

REACTIONS (1)
  - THROMBOCYTOPENIA [None]
